FAERS Safety Report 16917083 (Version 2)
Quarter: 2019Q4

REPORT INFORMATION
  Report Type: Spontaneous
  Country: ES (occurrence: ES)
  Receive Date: 20191015
  Receipt Date: 20191031
  Transmission Date: 20200122
  Serious: Yes (Other)
  Sender: FDA-Public Use
  Company Number: ES-SUN PHARMACEUTICAL INDUSTRIES LTD-2019RR-223363

PATIENT
  Age: 94 Year
  Sex: Female

DRUGS (9)
  1. BUPIVACAINE. [Concomitant]
     Active Substance: BUPIVACAINE
     Indication: NERVE BLOCK
     Dosage: 0.25 PERCENT
     Route: 065
  2. EMLA [Concomitant]
     Active Substance: LIDOCAINE\PRILOCAINE
     Indication: ANAESTHESIA
     Route: 065
  3. PREGABALIN. [Interacting]
     Active Substance: PREGABALIN
     Indication: PAIN
     Dosage: 225 MILLIGRAM, DAILY
     Route: 065
  4. LIDOCAINE. [Suspect]
     Active Substance: LIDOCAINE
     Indication: PAIN
     Route: 065
  5. CAPSAICIN. [Concomitant]
     Active Substance: CAPSAICIN
     Indication: ANAESTHESIA
     Dosage: EVERY 12 HOURS
     Route: 065
  6. TRIGON [Concomitant]
     Active Substance: TRIAMCINOLONE ACETONIDE
     Indication: NERVE BLOCK
     Route: 065
  7. MORPHINE [Suspect]
     Active Substance: MORPHINE
     Indication: PAIN
     Dosage: 2.5 MILLIGRAM, UNK
     Route: 065
  8. DULOXETINE. [Concomitant]
     Active Substance: DULOXETINE
     Indication: ANAESTHESIA
     Dosage: 30 MILLIGRAM, UNK
     Route: 065
  9. VALACYCLOVIR [Concomitant]
     Active Substance: VALACYCLOVIR HYDROCHLORIDE
     Indication: PRODUCT USED FOR UNKNOWN INDICATION
     Route: 065

REACTIONS (5)
  - Drug interaction [Unknown]
  - Contraindicated product administered [Unknown]
  - Therapeutic product effect incomplete [Unknown]
  - Myoclonus [Unknown]
  - Hallucination, visual [Unknown]
